FAERS Safety Report 21457013 (Version 1)
Quarter: 2022Q4

REPORT INFORMATION
  Report Type: Spontaneous
  Country: None (occurrence: US)
  Receive Date: 20221014
  Receipt Date: 20221014
  Transmission Date: 20230113
  Serious: No
  Sender: FDA-Public Use
  Company Number: US-PharmaLex India-2133830

PATIENT
  Age: 70 Year
  Sex: Male

DRUGS (1)
  1. ILLUCCIX [Suspect]
     Active Substance: GALLIUM GA-68 GOZETOTIDE
     Indication: Imaging procedure
     Route: 040
     Dates: start: 20220718, end: 20220718

REACTIONS (2)
  - Positron emission tomogram abnormal [Unknown]
  - Product preparation error [Unknown]

NARRATIVE: CASE EVENT DATE: 20220718
